FAERS Safety Report 7960951-8 (Version None)
Quarter: 2011Q4

REPORT INFORMATION
  Report Type: 
  Country: None (occurrence: None)
  Receive Date: 20111207
  Receipt Date: 20111125
  Transmission Date: 20120403
  Serious: Yes (Other)
  Sender: FDA-Public Use
  Company Number: BR-JNJFOC-20111111520

PATIENT
  Age: 35 Year
  Sex: Male
  Weight: 73 kg

DRUGS (3)
  1. REMICADE [Suspect]
     Indication: ANKYLOSING SPONDYLITIS
     Route: 065
     Dates: start: 20110812
  2. METHOTREXATE [Concomitant]
     Route: 065
  3. REMICADE [Suspect]
     Dosage: 4TH TREATMENT ON UNSPECIFIED DATE
     Route: 065
     Dates: start: 20110101

REACTIONS (3)
  - BACK PAIN [None]
  - ARTHRALGIA [None]
  - LIVER DISORDER [None]
